FAERS Safety Report 10882009 (Version 2)
Quarter: 2015Q4

REPORT INFORMATION
  Report Type: Spontaneous
  Country: FR (occurrence: FR)
  Receive Date: 20150303
  Receipt Date: 20151027
  Transmission Date: 20160304
  Serious: Yes (Death, Hospitalization, Other)
  Sender: FDA-Public Use
  Company Number: FR-PFIZER INC-2015075564

PATIENT
  Age: 75 Year
  Sex: Male

DRUGS (2)
  1. CORDARONE [Suspect]
     Active Substance: AMIODARONE HYDROCHLORIDE
     Indication: ATRIAL FIBRILLATION
     Dosage: 200 MG, DAILY
     Route: 048
     Dates: start: 20121211, end: 2013
  2. PREVISCAN [Concomitant]
     Active Substance: FLUINDIONE
     Dosage: UNK

REACTIONS (4)
  - Interstitial lung disease [Fatal]
  - Pulmonary fibrosis [Unknown]
  - Acute respiratory failure [Fatal]
  - Pneumothorax [Fatal]

NARRATIVE: CASE EVENT DATE: 2013
